FAERS Safety Report 6717711-5 (Version None)
Quarter: 2010Q2

REPORT INFORMATION
  Report Type: 
  Country: None (occurrence: None)
  Receive Date: 20100510
  Receipt Date: 20100428
  Transmission Date: 20101027
  Serious: Yes (Other)
  Sender: FDA-Public Use
  Company Number: US-SANOFI-AVENTIS-2010SA025405

PATIENT
  Age: 63 Year
  Sex: Female
  Weight: 65.76 kg

DRUGS (8)
  1. PLAVIX [Suspect]
     Route: 048
     Dates: start: 20100401
  2. FLUOXETINE [Suspect]
  3. PRILOSEC [Suspect]
     Dates: start: 20090101
  4. SYNTHROID [Concomitant]
  5. TRAZODONE [Concomitant]
  6. LORAZEPAM [Concomitant]
     Dates: start: 20090101
  7. VITAMIN D [Concomitant]
     Dates: start: 20090101
  8. LOVAZA [Concomitant]
     Dates: start: 20090101

REACTIONS (3)
  - ANGINA PECTORIS [None]
  - DRUG INEFFECTIVE [None]
  - DRUG INTERACTION [None]
